FAERS Safety Report 4583670-7 (Version None)
Quarter: 2005Q1

REPORT INFORMATION
  Report Type: 
  Country: None (occurrence: None)
  Receive Date: 20050125
  Receipt Date: 20041007
  Transmission Date: 20050727
  Serious: No
  Sender: FDA-Public Use
  Company Number: USA041080587

PATIENT
  Age: 71 Year
  Sex: Female

DRUGS (2)
  1. EVISTA [Suspect]
     Indication: BONE DISORDER
     Dates: start: 20030101
  2. FORTEO [Suspect]
     Indication: BONE DISORDER
     Dates: start: 20040101

REACTIONS (2)
  - FEELING HOT [None]
  - HYPERHIDROSIS [None]
